FAERS Safety Report 14162670 (Version 1)
Quarter: 2017Q4

REPORT INFORMATION
  Report Type: Spontaneous
  Country: IR (occurrence: IR)
  Receive Date: 20171106
  Receipt Date: 20171106
  Transmission Date: 20180321
  Serious: Yes (Death, Other)
  Sender: FDA-Public Use
  Company Number: IR-PIRAMAL CRITICAL CARE LIMITED-2017-PEL-003240

PATIENT

DRUGS (5)
  1. REMIFENTANIL [Concomitant]
     Active Substance: REMIFENTANIL
     Indication: MAINTENANCE OF ANAESTHESIA
     Route: 041
  2. ATRACURIUM [Concomitant]
     Active Substance: ATRACURIUM
     Indication: ENDOTRACHEAL INTUBATION
  3. ATRACURIUM [Concomitant]
     Active Substance: ATRACURIUM
     Indication: MAINTENANCE OF ANAESTHESIA
     Route: 041
  4. ISOFLURANE. [Suspect]
     Active Substance: ISOFLURANE
     Indication: MAINTENANCE OF ANAESTHESIA
     Dosage: UNK
  5. MIDAZOLAM [Concomitant]
     Active Substance: MIDAZOLAM HYDROCHLORIDE
     Indication: MAINTENANCE OF ANAESTHESIA
     Route: 041

REACTIONS (20)
  - Trismus [Unknown]
  - Tachycardia [Unknown]
  - Hypotension [Unknown]
  - Mitral valve disease [Unknown]
  - Multiple organ dysfunction syndrome [Fatal]
  - Metabolic acidosis [Unknown]
  - Altered state of consciousness [Unknown]
  - Mass [Unknown]
  - Coma [Unknown]
  - Anuria [Unknown]
  - Atrial fibrillation [Recovered/Resolved]
  - Pulmonary oedema [Unknown]
  - Hyperthermia malignant [Unknown]
  - Pyrexia [Unknown]
  - Tachypnoea [Unknown]
  - Oliguria [Unknown]
  - Ventricular extrasystoles [Unknown]
  - Respiratory distress [Unknown]
  - Hypocalcaemia [Unknown]
  - Hypoglycaemia [Unknown]
